FAERS Safety Report 25348673 (Version 1)
Quarter: 2025Q2

REPORT INFORMATION
  Report Type: Spontaneous
  Country: IN (occurrence: IN)
  Receive Date: 20250522
  Receipt Date: 20250522
  Transmission Date: 20250717
  Serious: Yes (Death)
  Sender: PFIZER
  Company Number: IN-PFIZER INC-PV202500061473

PATIENT
  Age: 79 Year
  Sex: Male

DRUGS (1)
  1. DACOMITINIB [Suspect]
     Active Substance: DACOMITINIB
     Route: 048

REACTIONS (1)
  - Death [Fatal]
